FAERS Safety Report 7519214-7 (Version None)
Quarter: 2011Q2

REPORT INFORMATION
  Report Type: 
  Country: None (occurrence: None)
  Receive Date: 20110602
  Receipt Date: 20110419
  Transmission Date: 20111010
  Serious: Yes (Other)
  Sender: FDA-Public Use
  Company Number: US-BRISTOL-MYERS SQUIBB COMPANY-15568173

PATIENT
  Age: 50 Year
  Sex: Female
  Weight: 63 kg

DRUGS (8)
  1. NUVIGIL [Concomitant]
     Dosage: NUVIGIL ON OCCASIONS
  2. INSULIN [Concomitant]
  3. KOMBIGLYZE XR [Suspect]
     Indication: DIABETES MELLITUS
     Dosage: 5/1000 MG
  4. VICODIN [Concomitant]
  5. CRESTOR [Concomitant]
  6. AZARGA [Concomitant]
     Indication: HYPERTENSION
  7. LUNESTA [Concomitant]
     Dosage: LUNESTA ON OCCASIONS
  8. CHANTIX [Concomitant]

REACTIONS (1)
  - BLOOD GLUCOSE INCREASED [None]
